FAERS Safety Report 14648834 (Version 1)
Quarter: 2018Q1

REPORT INFORMATION
  Report Type: Spontaneous
  Country: ES (occurrence: ES)
  Receive Date: 20180316
  Receipt Date: 20180316
  Transmission Date: 20180509
  Serious: Yes (Other)
  Sender: FDA-Public Use
  Company Number: ES-AUROBINDO-AUR-APL-2018-014794

PATIENT
  Age: 27 Year
  Sex: Male

DRUGS (2)
  1. VARIDASA [Suspect]
     Active Substance: STREPTOKINASE-STREPTODORNASE
     Indication: UPPER RESPIRATORY TRACT INFLAMMATION
     Dosage: ()
     Route: 065
     Dates: start: 201606, end: 201606
  2. PANTOPRAZOLE [Suspect]
     Active Substance: PANTOPRAZOLE
     Indication: UPPER RESPIRATORY TRACT INFLAMMATION
     Dosage: ()
     Route: 065
     Dates: start: 201606, end: 201606

REACTIONS (1)
  - Pancreatitis acute [Recovered/Resolved]

NARRATIVE: CASE EVENT DATE: 20160610
